FAERS Safety Report 6698661-X (Version None)
Quarter: 2010Q2

REPORT INFORMATION
  Report Type: 
  Country: None (occurrence: None)
  Receive Date: 20100427
  Receipt Date: 20100414
  Transmission Date: 20101027
  Serious: No
  Sender: FDA-Public Use
  Company Number: PHHY2010US24324

PATIENT
  Age: 28 Year
  Sex: Female
  Weight: 85.7 kg

DRUGS (5)
  1. TASIGNA [Suspect]
     Indication: CHRONIC MYELOID LEUKAEMIA
     Dosage: 200 MG, BID
     Route: 048
     Dates: start: 20100301
  2. PROCHLORPERAZINE [Concomitant]
  3. PROAIR HFA [Concomitant]
  4. ADVAIR DISKUS 100/50 [Concomitant]
  5. COUMADIN [Concomitant]

REACTIONS (3)
  - ALOPECIA [None]
  - FATIGUE [None]
  - VOMITING [None]
